FAERS Safety Report 24593967 (Version 1)
Quarter: 2024Q4

REPORT INFORMATION
  Report Type: Spontaneous
  Country: US (occurrence: US)
  Receive Date: 20241108
  Receipt Date: 20241108
  Transmission Date: 20250114
  Serious: No
  Sender: PFIZER
  Company Number: US-PFIZER INC-PV202400143027

PATIENT
  Age: 70 Year
  Sex: Female
  Weight: 83.6 kg

DRUGS (1)
  1. IBRANCE [Suspect]
     Active Substance: PALBOCICLIB
     Indication: Metastatic neoplasm
     Dosage: TAKE 1 TABLET BY MOUTH. SWALLOW WHOLE ONCE A DAYS 1-21, OFF 7 DAYS, THEN REPEAT
     Route: 048

REACTIONS (3)
  - Back pain [Unknown]
  - Hypercalcaemia of malignancy [Unknown]
  - Neoplasm progression [Unknown]
